FAERS Safety Report 7522406-4 (Version None)
Quarter: 2011Q2

REPORT INFORMATION
  Report Type: 
  Country: None (occurrence: None)
  Receive Date: 20110603
  Receipt Date: 20110520
  Transmission Date: 20111010
  Serious: Yes (Hospitalization)
  Sender: FDA-Public Use
  Company Number: US-JNJFOC-20110510815

PATIENT
  Sex: Female
  Weight: 27.4 kg

DRUGS (5)
  1. REMICADE [Suspect]
     Route: 042
     Dates: start: 20110516
  2. MESALAMINE [Concomitant]
     Route: 065
  3. REMICADE [Suspect]
     Indication: COLITIS
     Route: 042
     Dates: start: 20110502
  4. REMICADE [Suspect]
     Route: 042
     Dates: start: 20110407
  5. MERCAPTOPURINE [Concomitant]
     Route: 065

REACTIONS (1)
  - COLITIS [None]
